FAERS Safety Report 23831071 (Version 1)
Quarter: 2024Q2

REPORT INFORMATION
  Report Type: Spontaneous
  Country: CA (occurrence: CA)
  Receive Date: 20240508
  Receipt Date: 20240508
  Transmission Date: 20240716
  Serious: Yes (Disabling, Other)
  Sender: FDA-Public Use
  Company Number: CA-TEVA-VS-3195495

PATIENT
  Age: 33 Year
  Sex: Male
  Weight: 130.18 kg

DRUGS (3)
  1. MOXIFLOXACIN [Suspect]
     Active Substance: MOXIFLOXACIN
     Indication: Prophylaxis
     Route: 047
  2. AMLODIPINE [Concomitant]
     Active Substance: AMLODIPINE BESYLATE
     Indication: Product used for unknown indication
     Route: 065
  3. VALSARTAN [Concomitant]
     Active Substance: VALSARTAN
     Indication: Product used for unknown indication
     Route: 065

REACTIONS (6)
  - Arthralgia [Unknown]
  - Back pain [Unknown]
  - Burning sensation [Unknown]
  - Hypokinesia [Unknown]
  - Musculoskeletal discomfort [Unknown]
  - Tendon pain [Unknown]
